FAERS Safety Report 22218020 (Version 1)
Quarter: 2023Q2

REPORT INFORMATION
  Report Type: Spontaneous
  Country: EG (occurrence: None)
  Receive Date: 20230417
  Receipt Date: 20230417
  Transmission Date: 20230721
  Serious: Yes (Hospitalization, Other)
  Sender: FDA-Public Use
  Company Number: EG-MICRO LABS LIMITED-ML2023-02082

PATIENT
  Age: 31 Year
  Sex: Male

DRUGS (1)
  1. TRANEXAMIC ACID [Suspect]
     Active Substance: TRANEXAMIC ACID
     Indication: Product used for unknown indication
     Dosage: TXA AMPOULE (500 MG/5 ML)
     Route: 039

REACTIONS (7)
  - Sinus tachycardia [Recovering/Resolving]
  - Blood pressure increased [Recovering/Resolving]
  - Agitation [Unknown]
  - Musculoskeletal pain [Unknown]
  - Myoclonus [Recovered/Resolved]
  - Seizure [Recovered/Resolved]
  - Medication error [Unknown]
